FAERS Safety Report 25700042 (Version 1)
Quarter: 2025Q3

REPORT INFORMATION
  Report Type: Spontaneous
  Country: US (occurrence: None)
  Receive Date: 20250819
  Receipt Date: 20250819
  Transmission Date: 20251021
  Serious: No
  Sender: INCYTE
  Company Number: US-INCYTE CORPORATION-2025IN008735

PATIENT
  Age: 19 Year

DRUGS (1)
  1. JAKAFI [Suspect]
     Active Substance: RUXOLITINIB
     Indication: Acute lymphocytic leukaemia refractory
     Dosage: 120 MG (4 TABS - 20MG EACH) QD AT 50MG/M2/DOSE

REACTIONS (2)
  - Prescribed overdose [Unknown]
  - Off label use [Unknown]
